FAERS Safety Report 22172824 (Version 2)
Quarter: 2024Q4

REPORT INFORMATION
  Report Type: Spontaneous
  Country: US (occurrence: US)
  Receive Date: 20230404
  Receipt Date: 20241008
  Transmission Date: 20250115
  Serious: No
  Sender: JOHNSON AND JOHNSON
  Company Number: US-JNJFOC-20230366065

PATIENT
  Sex: Male

DRUGS (1)
  1. MENS ROGAINE EXTRA STRENGTH [Suspect]
     Active Substance: MINOXIDIL
     Indication: Product used for unknown indication
     Route: 065
     Dates: start: 20220521

REACTIONS (1)
  - Glossopharyngeal neuralgia [Not Recovered/Not Resolved]

NARRATIVE: CASE EVENT DATE: 20220101
